FAERS Safety Report 8439227 (Version 2)
Quarter: 2013Q2

REPORT INFORMATION
  Report Type: Spontaneous
  Country: US (occurrence: None)
  Receive Date: 20120104
  Receipt Date: 20120508
  Transmission Date: 20140414
  Serious: Yes (Other)
  Sender: FDA-Public Use
  Company Number: 2011HGS-002774

PATIENT
  Age: 29 Year
  Sex: Male

DRUGS (4)
  1. BENLYSTA [Suspect]
     Indication: SYSTEMIC LUPUS ERYTHEMATOSUS
     Dosage: 1 IN 28 D
     Route: 041
     Dates: start: 20111011
  2. PREDNISONE [Concomitant]
  3. IMURAN (AZATHIOPRINE) [Concomitant]
  4. ENALAPRIL [Concomitant]

REACTIONS (1)
  - CELLULITIS [None]
